FAERS Safety Report 8382158-5 (Version None)
Quarter: 2012Q2

REPORT INFORMATION
  Report Type: 
  Country: None (occurrence: None)
  Receive Date: 20120524
  Receipt Date: 20120521
  Transmission Date: 20120825
  Serious: Yes (Other)
  Sender: FDA-Public Use
  Company Number: US-PFIZER INC-2012123859

PATIENT
  Age: 45 Year
  Sex: Male

DRUGS (2)
  1. PRISTIQ [Suspect]
     Dosage: UNK
  2. CELEBREX [Suspect]
     Indication: BACK PAIN
     Dosage: UNK

REACTIONS (4)
  - HAEMORRHAGIC DIATHESIS [None]
  - ABDOMINAL DISCOMFORT [None]
  - HAEMORRHAGE [None]
  - PLATELET FUNCTION TEST ABNORMAL [None]
